FAERS Safety Report 6165463-2 (Version None)
Quarter: 2009Q2

REPORT INFORMATION
  Report Type: 
  Country: None (occurrence: None)
  Receive Date: 20090421
  Receipt Date: 20090421
  Transmission Date: 20091009
  Serious: No
  Sender: FDA-Public Use
  Company Number: None

PATIENT
  Age: 61 Year
  Sex: Female
  Weight: 64.4108 kg

DRUGS (1)
  1. RECLAST [Suspect]
     Indication: OSTEOPOROSIS
     Dosage: I.V. INFUSION YEAR
     Route: 042
     Dates: start: 20090225, end: 20090225

REACTIONS (7)
  - ACTIVITIES OF DAILY LIVING IMPAIRED [None]
  - ERYTHEMA [None]
  - HEADACHE [None]
  - MUSCULAR WEAKNESS [None]
  - MYALGIA [None]
  - RASH [None]
  - SWELLING FACE [None]
